FAERS Safety Report 4914628-3 (Version None)
Quarter: 2006Q1

REPORT INFORMATION
  Report Type: 
  Country: None (occurrence: None)
  Receive Date: 20060216
  Receipt Date: 20051019
  Transmission Date: 20060701
  Serious: Yes (Hospitalization)
  Sender: FDA-Public Use
  Company Number: US-MERCK-0510USA08261

PATIENT
  Age: 65 Year
  Sex: Female
  Weight: 69 kg

DRUGS (12)
  1. VIOXX [Suspect]
     Indication: PLANTAR FASCIITIS
     Route: 048
     Dates: start: 20000101, end: 20040601
  2. VIOXX [Suspect]
     Indication: OSTEOARTHRITIS
     Route: 048
     Dates: start: 20000101, end: 20040601
  3. WELLBUTRIN [Concomitant]
     Route: 065
  4. PLAVIX [Concomitant]
     Route: 065
  5. MECLIZINE [Concomitant]
     Route: 065
  6. HYZAAR [Concomitant]
     Route: 065
  7. CLARITIN [Concomitant]
     Route: 065
  8. LEVOXYL [Concomitant]
     Route: 065
  9. FOLIC ACID [Concomitant]
     Route: 065
  10. EFFEXOR [Concomitant]
     Route: 065
  11. ASPIRIN [Concomitant]
     Route: 065
  12. ACCOLATE [Concomitant]
     Route: 065

REACTIONS (14)
  - ANXIETY DISORDER [None]
  - BREAST CANCER [None]
  - CEREBROVASCULAR DISORDER [None]
  - COORDINATION ABNORMAL [None]
  - ESSENTIAL HYPERTENSION [None]
  - GASTROOESOPHAGEAL REFLUX DISEASE [None]
  - HYPERLIPIDAEMIA [None]
  - HYPOTHYROIDISM [None]
  - INFECTION [None]
  - MAJOR DEPRESSION [None]
  - NEURITIS [None]
  - SLEEP DISORDER [None]
  - TRANSIENT ISCHAEMIC ATTACK [None]
  - VERTIGO [None]
